FAERS Safety Report 9518192 (Version 1)
Quarter: 2013Q3

REPORT INFORMATION
  Report Type: Spontaneous
  Country: US (occurrence: US)
  Receive Date: 20130912
  Receipt Date: 20130912
  Transmission Date: 20140515
  Serious: No
  Sender: FDA-Public Use
  Company Number: US-JNJFOC-20130904405

PATIENT
  Age: 53 Year
  Sex: Female
  Weight: 86.64 kg

DRUGS (4)
  1. SANDOZ FENTANYL TRANSDERMAL SYSTEM [Suspect]
     Indication: PAIN
     Dosage: BUT CHANGED AFTER 2 DAYS
     Route: 062
     Dates: start: 20130826, end: 20130828
  2. ALBUTEROL [Concomitant]
     Indication: ASTHMA
     Dosage: INHALATION TAKEN VIA ORAL ROUTE
     Route: 048
  3. ADVAIR [Concomitant]
     Indication: ASTHMA
     Dosage: 250 UNSPECIFIED UNITS,
     Route: 048
  4. LAMOTRIGINE [Concomitant]
     Indication: DEPRESSION
     Dosage: 2 X100 MG
     Route: 048

REACTIONS (3)
  - Incorrect drug administration duration [Recovered/Resolved]
  - Wrong technique in drug usage process [Not Recovered/Not Resolved]
  - Incorrect drug administration duration [Not Recovered/Not Resolved]
